FAERS Safety Report 5728128-4 (Version None)
Quarter: 2008Q2

REPORT INFORMATION
  Report Type: 
  Country: None (occurrence: None)
  Receive Date: 20080505
  Receipt Date: 20080422
  Transmission Date: 20081010
  Serious: Yes (Hospitalization, Other)
  Sender: FDA-Public Use
  Company Number: JP-MERCK-0804USA02074

PATIENT
  Age: 59 Year
  Sex: Male
  Weight: 60 kg

DRUGS (6)
  1. ADALAT [Concomitant]
     Indication: HYPERTENSION
     Route: 048
     Dates: start: 20021101, end: 20080317
  2. COZAAR [Concomitant]
     Route: 048
     Dates: start: 20030201, end: 20080307
  3. COZAAR [Concomitant]
     Route: 048
     Dates: start: 20030301
  4. HYZAAR [Suspect]
     Indication: HYPERTENSION
     Route: 048
     Dates: start: 20080308, end: 20080317
  5. CILOSTAZOL [Concomitant]
     Indication: CEREBRAL INFARCTION
     Route: 048
     Dates: start: 20060601
  6. TAMSULOSIN HYDROCHLORIDE [Concomitant]
     Indication: BENIGN PROSTATIC HYPERPLASIA
     Route: 048
     Dates: start: 20070101

REACTIONS (2)
  - CEREBRAL INFARCTION [None]
  - HYPOTENSION [None]
